FAERS Safety Report 7633806-6 (Version None)
Quarter: 2011Q3

REPORT INFORMATION
  Report Type: 
  Country: None (occurrence: None)
  Receive Date: 20110725
  Receipt Date: 20110720
  Transmission Date: 20111222
  Serious: Yes (Hospitalization, Disabling)
  Sender: FDA-Public Use
  Company Number: GB-MERCK-1107GBR00087

PATIENT
  Age: 83 Year
  Sex: Male
  Weight: 96 kg

DRUGS (10)
  1. NIFEDIPINE [Concomitant]
     Route: 048
  2. PIOGLITAZONE HYDROCHLORIDE [Concomitant]
     Route: 048
  3. ASPIRIN [Concomitant]
     Indication: DIABETES MELLITUS
     Route: 048
  4. ALLOPURINOL [Concomitant]
     Indication: GOUT
     Route: 048
  5. JANUVIA [Suspect]
     Route: 048
     Dates: end: 20110516
  6. ACETAMINOPHEN AND CODEINE PHOSPHATE [Concomitant]
     Indication: PAIN
     Route: 065
  7. RAMIPRIL [Concomitant]
     Route: 048
  8. GLICLAZIDE [Concomitant]
     Indication: DIABETES MELLITUS
     Route: 065
  9. ATORVASTATIN [Concomitant]
     Route: 048
  10. TAMSULOSIN HYDROCHLORIDE [Concomitant]
     Route: 048

REACTIONS (2)
  - HEPATITIS [None]
  - JAUNDICE [None]
